FAERS Safety Report 7706112-9 (Version None)
Quarter: 2011Q3

REPORT INFORMATION
  Report Type: 
  Country: None (occurrence: None)
  Receive Date: 20110801
  Receipt Date: 20110428
  Transmission Date: 20111222
  Serious: Yes (Other)
  Sender: FDA-Public Use
  Company Number: 276015USA

PATIENT
  Age: 30 Year
  Sex: Female
  Weight: 95.2554 kg

DRUGS (5)
  1. DOXORUBICIN HCL [Concomitant]
  2. DACARBAZINE [Concomitant]
  3. BLEOMYCIN SULFATE [Suspect]
     Indication: HODGKIN'S DISEASE
     Dosage: (1 IN 1 WK), INTRAVENOUS
     Route: 042
     Dates: start: 20101001, end: 20110304
  4. VINBLASTINE SULFATE [Concomitant]
  5. MULTI-VITAMINS [Concomitant]

REACTIONS (9)
  - TOXICITY TO VARIOUS AGENTS [None]
  - GAIT DISTURBANCE [None]
  - DYSPNOEA EXERTIONAL [None]
  - LUNG DISORDER [None]
  - HAEMOPTYSIS [None]
  - INFLAMMATION [None]
  - PALPITATIONS [None]
  - DRUG HYPERSENSITIVITY [None]
  - DYSPNOEA [None]
